FAERS Safety Report 8721037 (Version 2)
Quarter: 2013Q4

REPORT INFORMATION
  Report Type: Spontaneous
  Country: US (occurrence: US)
  Receive Date: 20120813
  Receipt Date: 20131101
  Transmission Date: 20140711
  Serious: No
  Sender: FDA-Public Use
  Company Number: US-009507513-1208USA004280

PATIENT
  Sex: Female

DRUGS (1)
  1. COPPERTONE LOTION SPF 8 [Suspect]
     Indication: PRODUCT USED FOR UNKNOWN INDICATION
     Dosage: UNK, ONCE
     Route: 061
     Dates: start: 20120603

REACTIONS (2)
  - Oropharyngeal pain [Unknown]
  - Rash macular [Not Recovered/Not Resolved]
